FAERS Safety Report 6504424-8 (Version None)
Quarter: 2009Q4

REPORT INFORMATION
  Report Type: 
  Country: None (occurrence: None)
  Receive Date: 20091214
  Receipt Date: 20091203
  Transmission Date: 20100525
  Serious: Yes (Life-Threatening, Hospitalization, Other)
  Sender: FDA-Public Use
  Company Number: WAES 0810PHL00003

PATIENT
  Sex: Female

DRUGS (9)
  1. COZAAR [Suspect]
     Indication: CARDIAC FAILURE CONGESTIVE
     Dosage: 50MG/DAILY
     Route: 048
     Dates: start: 20020708
  2. ALBUTEROL SULFATE + IPRATROPIUM BROMID [Concomitant]
  3. ALLOPURINOL [Concomitant]
  4. CARVEDILOL [Concomitant]
  5. DIGOXIN [Concomitant]
  6. DOXOFYLLINE [Concomitant]
  7. ETORICOXIB [Concomitant]
  8. FUROSEMIDE [Concomitant]
  9. SPIRONOLACTONE [Concomitant]

REACTIONS (7)
  - ASTHMA [None]
  - BLOOD PRESSURE INCREASED [None]
  - EMPHYSEMA [None]
  - HEART RATE INCREASED [None]
  - HYPERTENSIVE HEART DISEASE [None]
  - PNEUMONIA [None]
  - TACHYPNOEA [None]
